FAERS Safety Report 24989191 (Version 2)
Quarter: 2025Q1

REPORT INFORMATION
  Report Type: Spontaneous
  Country: SE (occurrence: SE)
  Receive Date: 20250220
  Receipt Date: 20250314
  Transmission Date: 20250408
  Serious: Yes (Other)
  Sender: EMD SERONO INC
  Company Number: SE-Merck Healthcare KGaA-2024045586

PATIENT
  Age: 56 Year
  Sex: Female

DRUGS (1)
  1. TEPMETKO [Suspect]
     Active Substance: TEPOTINIB HYDROCHLORIDE
     Indication: Lung neoplasm malignant

REACTIONS (6)
  - Pyrexia [Recovering/Resolving]
  - Rash [Recovering/Resolving]
  - Mouth ulceration [Recovering/Resolving]
  - C-reactive protein increased [Recovering/Resolving]
  - Skin exfoliation [Not Recovered/Not Resolved]
  - Oedema [Unknown]
